FAERS Safety Report 6062774-6 (Version None)
Quarter: 2009Q1

REPORT INFORMATION
  Report Type: 
  Country: None (occurrence: None)
  Receive Date: 20090203
  Receipt Date: 20090123
  Transmission Date: 20090719
  Serious: No
  Sender: FDA-Public Use
  Company Number: US-JNJFOC-20090106349

PATIENT
  Sex: Male
  Weight: 79.38 kg

DRUGS (12)
  1. DURAGESIC-100 [Suspect]
     Indication: TRAUMATIC BRAIN INJURY
     Route: 062
  2. DURAGESIC-100 [Suspect]
     Indication: PAIN
     Dosage: TWO 100 UG/HR PATCHES
     Route: 062
  3. HYDROCODONE [Concomitant]
     Indication: PAIN
     Dosage: AS NEEDED
     Route: 048
  4. ZOLOFT [Concomitant]
     Indication: DEPRESSION
     Dosage: 100 MG 2 IN A.M.
     Route: 048
  5. TEGRETOL [Concomitant]
     Indication: CONVULSION
     Dosage: 200 MG TWO TABLETS
     Route: 048
  6. ISOSORB [Concomitant]
     Indication: CARDIAC DISORDER
     Route: 048
  7. PLAVIX [Concomitant]
     Indication: THROMBOSIS PROPHYLAXIS
     Dosage: ONE IN A.M.
     Route: 048
  8. COREG [Concomitant]
     Dosage: ONE IN A.M.
     Route: 048
  9. TRICOR [Concomitant]
     Indication: BLOOD CHOLESTEROL
     Route: 048
  10. AMITRIPTYLINE HCL [Concomitant]
     Indication: DEPRESSION
     Dosage: ONE AT NIGHT
     Route: 048
  11. DOXEPIN HCL [Concomitant]
     Indication: DEPRESSION
     Dosage: 200 MG/TABLET/100 MG ONE AT BEDTIME
     Route: 048
  12. SONATA [Concomitant]
     Indication: SLEEP DISORDER
     Dosage: ONE AT BEDTIME
     Route: 048

REACTIONS (4)
  - DRUG DOSE OMISSION [None]
  - STEREOTYPY [None]
  - TREMOR [None]
  - WITHDRAWAL SYNDROME [None]
